FAERS Safety Report 9462838 (Version 1)
Quarter: 2013Q3

REPORT INFORMATION
  Report Type: Report from Study
  Country: BR (occurrence: BR)
  Receive Date: 20130816
  Receipt Date: 20130816
  Transmission Date: 20140515
  Serious: Yes (Other)
  Sender: FDA-Public Use
  Company Number: BR-BAXTER-2013BAX032712

PATIENT
  Sex: 0

DRUGS (5)
  1. HOLOXANE [Suspect]
     Indication: SARCOMA
     Dosage: 9.0 G/M2
  2. HOLOXANE [Suspect]
     Dosage: INFUSED IN 2 HOURS FROM DAY 1 TO DAY 5
  3. MITEXAN [Suspect]
     Indication: SARCOMA
  4. DOXORUBICIN [Suspect]
     Indication: SARCOMA
     Dosage: ON DAY 1
     Route: 040
  5. FILGRASTIMA [Suspect]
     Indication: SARCOMA
     Dosage: AFTER LAST DOSE OF CHEMOTHERAPY
     Route: 058

REACTIONS (1)
  - Postoperative wound complication [Unknown]
